FAERS Safety Report 13381914 (Version 2)
Quarter: 2017Q2

REPORT INFORMATION
  Report Type: Spontaneous
  Country: GB (occurrence: GB)
  Receive Date: 20170329
  Receipt Date: 20170501
  Transmission Date: 20170830
  Serious: Yes (Hospitalization)
  Sender: FDA-Public Use
  Company Number: PHFR2017GB001863

PATIENT
  Age: 41 Year
  Sex: Female

DRUGS (3)
  1. COSENTYX [Suspect]
     Active Substance: SECUKINUMAB
     Indication: PSORIASIS
     Dosage: 300 MG, QMO
     Route: 058
  2. COSENTYX [Suspect]
     Active Substance: SECUKINUMAB
     Indication: PSORIATIC ARTHROPATHY
  3. MIRENA [Concomitant]
     Active Substance: LEVONORGESTREL
     Indication: VAGINAL HAEMORRHAGE
     Dosage: UNK
     Route: 067
     Dates: start: 201704

REACTIONS (6)
  - Erythema [Unknown]
  - C-reactive protein increased [Unknown]
  - Dermatitis exfoliative [Recovered/Resolved]
  - Pain [Unknown]
  - Cystitis [Recovered/Resolved]
  - Aspartate aminotransferase increased [Unknown]

NARRATIVE: CASE EVENT DATE: 20170120
